FAERS Safety Report 6248908-9 (Version None)
Quarter: 2009Q2

REPORT INFORMATION
  Report Type: 
  Country: None (occurrence: None)
  Receive Date: 20090629
  Receipt Date: 20090616
  Transmission Date: 20091009
  Serious: Yes (Other)
  Sender: FDA-Public Use
  Company Number: AU-PFIZER INC-2009212829

PATIENT
  Age: 50 Year

DRUGS (3)
  1. CHAMPIX [Suspect]
     Indication: SMOKING CESSATION THERAPY
     Dosage: 1 MG, 2X/DAY
     Route: 048
     Dates: start: 20090330
  2. KAPANOL [Interacting]
     Indication: PAIN
     Dosage: 50 MG, 2X/DAY
     Route: 048
  3. AMLODIPINE MALEATE [Concomitant]
     Dosage: 5 MG, 1X/DAY
     Route: 048
     Dates: start: 20080801

REACTIONS (2)
  - INHIBITORY DRUG INTERACTION [None]
  - PAIN [None]
